FAERS Safety Report 7567918-2 (Version None)
Quarter: 2011Q2

REPORT INFORMATION
  Report Type: 
  Country: None (occurrence: None)
  Receive Date: 20110616
  Receipt Date: 20110608
  Transmission Date: 20111010
  Serious: Yes (Hospitalization)
  Sender: FDA-Public Use
  Company Number: FUR-11-06

PATIENT
  Age: 60 Year
  Sex: Female

DRUGS (3)
  1. ETORICOXIB [Concomitant]
  2. FUROSEMIDE [Suspect]
     Dosage: 40-60MG
  3. ORLISTAT [Concomitant]

REACTIONS (2)
  - RENAL FAILURE [None]
  - KIDNEY FIBROSIS [None]
